FAERS Safety Report 5431429-0 (Version None)
Quarter: 2007Q3

REPORT INFORMATION
  Report Type: 
  Country: None (occurrence: None)
  Receive Date: 20070830
  Receipt Date: 20070611
  Transmission Date: 20080115
  Serious: Yes (Other)
  Sender: FDA-Public Use
  Company Number: A0655073A

PATIENT
  Age: 37 Year
  Sex: Male

DRUGS (2)
  1. WELLBUTRIN XL [Suspect]
     Indication: DEPRESSION
     Dosage: 150MG PER DAY
     Route: 048
     Dates: start: 20070531
  2. NO CONCURRENT MEDICATION [Concomitant]

REACTIONS (11)
  - AGITATION [None]
  - ANXIETY [None]
  - DEPRESSION [None]
  - DRY MOUTH [None]
  - INSOMNIA [None]
  - IRRITABILITY [None]
  - NIGHT SWEATS [None]
  - PANIC REACTION [None]
  - PSYCHOMOTOR SKILLS IMPAIRED [None]
  - RESTLESSNESS [None]
  - SUICIDAL IDEATION [None]
